FAERS Safety Report 8295029-X (Version None)
Quarter: 2012Q2

REPORT INFORMATION
  Report Type: 
  Country: None (occurrence: None)
  Receive Date: 20120418
  Receipt Date: 20120411
  Transmission Date: 20120825
  Serious: Yes (Other)
  Sender: FDA-Public Use
  Company Number: US-ELI_LILLY_AND_COMPANY-US201203008761

PATIENT
  Sex: Female

DRUGS (2)
  1. FORTEO [Suspect]
     Dosage: 20 UG, QD
  2. FORTEO [Suspect]
     Indication: OSTEOPOROSIS
     Dosage: 20 UG, QD
     Dates: start: 20120201

REACTIONS (17)
  - GASTROOESOPHAGEAL REFLUX DISEASE [None]
  - HIP FRACTURE [None]
  - ARTHROPATHY [None]
  - LETHARGY [None]
  - BURSITIS [None]
  - MUSCLE SPASMS [None]
  - DEPRESSED MOOD [None]
  - NAUSEA [None]
  - INSOMNIA [None]
  - FEELING ABNORMAL [None]
  - VERTIGO [None]
  - GAIT DISTURBANCE [None]
  - DYSPHAGIA [None]
  - HIATUS HERNIA [None]
  - CHEST DISCOMFORT [None]
  - BALANCE DISORDER [None]
  - DIZZINESS [None]
